FAERS Safety Report 25957973 (Version 1)
Quarter: 2025Q4

REPORT INFORMATION
  Report Type: Spontaneous
  Country: US (occurrence: None)
  Receive Date: 20251023
  Receipt Date: 20251023
  Transmission Date: 20260117
  Serious: Yes (Hospitalization)
  Sender: FDA-CTU
  Company Number: None

PATIENT
  Sex: Female

DRUGS (1)
  1. NIVESTYM [Suspect]
     Active Substance: FILGRASTIM-AAFI
     Indication: Renal transplant
     Dosage: 300 UG MICROGRM(SA) 3 DAYS PER WEEK SUBCUTANEOUS?
     Route: 058
     Dates: start: 20250805

REACTIONS (3)
  - Viral infection [None]
  - Blood creatinine increased [None]
  - Blood urea increased [None]
